FAERS Safety Report 7528168-9 (Version None)
Quarter: 2011Q2

REPORT INFORMATION
  Report Type: 
  Country: None (occurrence: None)
  Receive Date: 20110607
  Receipt Date: 20100901
  Transmission Date: 20111010
  Serious: No
  Sender: FDA-Public Use
  Company Number: US-ASTRAZENECA-2010SE41116

PATIENT
  Sex: Male

DRUGS (1)
  1. PRILOSEC [Suspect]
     Indication: GASTROOESOPHAGEAL REFLUX DISEASE
     Route: 048
     Dates: start: 19900101

REACTIONS (7)
  - PLATELET COUNT DECREASED [None]
  - ABDOMINAL PAIN UPPER [None]
  - DRUG DOSE OMISSION [None]
  - DEPRESSED MOOD [None]
  - DRY MOUTH [None]
  - DRUG DEPENDENCE [None]
  - HUNGER [None]
